FAERS Safety Report 10874909 (Version 7)
Quarter: 2016Q1

REPORT INFORMATION
  Report Type: Spontaneous
  Country: BR (occurrence: BR)
  Receive Date: 20150227
  Receipt Date: 20160128
  Transmission Date: 20160525
  Serious: Yes (Hospitalization, Other)
  Sender: FDA-Public Use
  Company Number: BR-PFIZER INC-2015017187

PATIENT
  Age: 48 Year
  Sex: Male
  Weight: 60 kg

DRUGS (3)
  1. SUTENT [Suspect]
     Active Substance: SUNITINIB MALATE
     Indication: METASTATIC RENAL CELL CARCINOMA
     Dosage: 50 MG, 1X/DAY, CYCLIC (CYCLE 4 PER 2)
     Route: 048
     Dates: start: 20141231
  2. SUTENT [Suspect]
     Active Substance: SUNITINIB MALATE
     Dosage: 50 MG, 1X/DAY
     Route: 048
     Dates: start: 201501
  3. SUTENT [Suspect]
     Active Substance: SUNITINIB MALATE
     Dosage: 37.5 MG, 1X/DAY
     Route: 048
     Dates: start: 20151109, end: 201601

REACTIONS (11)
  - Skin sensitisation [Recovered/Resolved]
  - Nausea [Unknown]
  - Flatulence [Unknown]
  - Weight decreased [Unknown]
  - Dry skin [Recovered/Resolved]
  - Chromaturia [Recovered/Resolved]
  - Faeces soft [Unknown]
  - Acne [Recovered/Resolved]
  - Blister [Not Recovered/Not Resolved]
  - Erythema [Recovered/Resolved]
  - Ageusia [Unknown]

NARRATIVE: CASE EVENT DATE: 20141231
